FAERS Safety Report 7265712-3 (Version None)
Quarter: 2011Q1

REPORT INFORMATION
  Report Type: 
  Country: None (occurrence: None)
  Receive Date: 20110120
  Receipt Date: 20110113
  Transmission Date: 20110831
  Serious: Yes (Life-Threatening, Other)
  Sender: FDA-Public Use
  Company Number: 2010158821

PATIENT
  Age: 38 Year
  Sex: Female
  Weight: 130 kg

DRUGS (3)
  1. ACTILYSE ^BOEHRINGER INGELHEIM^ (ALTEPLASE) [Suspect]
     Indication: PULMONARY EMBOLISM
  2. FRAGMIN [Suspect]
  3. ZINACEF [Concomitant]

REACTIONS (3)
  - CARDIOGENIC SHOCK [None]
  - PULMONARY EMBOLISM [None]
  - ABDOMINAL WALL HAEMATOMA [None]
